FAERS Safety Report 9209090 (Version 1)
Quarter: 2013Q2

REPORT INFORMATION
  Report Type: Spontaneous
  Country: US (occurrence: US)
  Receive Date: 20130404
  Receipt Date: 20130404
  Transmission Date: 20140414
  Serious: Yes (Other)
  Sender: FDA-Public Use
  Company Number: PHEH2013US007525

PATIENT
  Sex: 0

DRUGS (5)
  1. EXELON PATCH [Suspect]
     Dosage: 9.5 MG (PATCH 10 CM2), DAILY
     Route: 062
  2. LOTREL [Concomitant]
     Dosage: UNK UKN, UNK
  3. LEVOTHYROXINE [Concomitant]
     Dosage: UNK UKN, UNK
  4. NAMENDA [Concomitant]
     Dosage: UNK UKN, UNK
  5. B12-VITAMIIN [Concomitant]
     Dosage: UNK UKN, UNK

REACTIONS (5)
  - Carotid artery aneurysm [Unknown]
  - Eye haemorrhage [Unknown]
  - Gastrointestinal disorder [Unknown]
  - Local swelling [Unknown]
  - Weight decreased [Unknown]
